FAERS Safety Report 5020633-1 (Version None)
Quarter: 2006Q2

REPORT INFORMATION
  Report Type: 
  Country: None (occurrence: None)
  Receive Date: 20060602
  Receipt Date: 20060516
  Transmission Date: 20061013
  Serious: Yes (Hospitalization)
  Sender: FDA-Public Use
  Company Number: US200605004103

PATIENT
  Age: 52 Year
  Sex: Female

DRUGS (1)
  1. CYMBALTA [Suspect]
     Dosage: 30  MG

REACTIONS (5)
  - AGITATION [None]
  - ANXIETY [None]
  - FATIGUE [None]
  - LABYRINTHITIS [None]
  - VERTIGO [None]
